FAERS Safety Report 7815163-5 (Version None)
Quarter: 2011Q4

REPORT INFORMATION
  Report Type: 
  Country: None (occurrence: None)
  Receive Date: 20111014
  Receipt Date: 20111004
  Transmission Date: 20120403
  Serious: Yes (Other)
  Sender: FDA-Public Use
  Company Number: IN-ALLERGAN-1113171US

PATIENT
  Age: 13 Year
  Sex: Male

DRUGS (1)
  1. OZURDEX [Suspect]
     Indication: EYE INFLAMMATION
     Dosage: 0.7 MG, SINGLE
     Route: 047

REACTIONS (3)
  - INTRAOCULAR PRESSURE INCREASED [None]
  - DEVICE DISLOCATION [None]
  - CORNEAL OEDEMA [None]
